FAERS Safety Report 6657410-1 (Version None)
Quarter: 2010Q1

REPORT INFORMATION
  Report Type: 
  Country: None (occurrence: None)
  Receive Date: 20100330
  Receipt Date: 20100317
  Transmission Date: 20100710
  Serious: Yes (Other)
  Sender: FDA-Public Use
  Company Number: US-PFIZER INC-2010035380

PATIENT
  Sex: Male
  Weight: 99.773 kg

DRUGS (3)
  1. CHANTIX [Suspect]
     Indication: SMOKING CESSATION THERAPY
     Dosage: UNK
     Dates: start: 20100307
  2. CYMBALTA [Concomitant]
     Dosage: UNK
  3. LYRICA [Concomitant]
     Dosage: UNK

REACTIONS (2)
  - AGITATION [None]
  - NERVOUSNESS [None]
